FAERS Safety Report 8574775-4 (Version None)
Quarter: 2012Q3

REPORT INFORMATION
  Report Type: 
  Country: None (occurrence: None)
  Receive Date: 20120807
  Receipt Date: 20120730
  Transmission Date: 20120928
  Serious: Yes (Hospitalization, Disabling, Other)
  Sender: FDA-Public Use
  Company Number: US-009507513-2010SP002783

PATIENT

DRUGS (2)
  1. NUVARING [Suspect]
     Indication: CONTRACEPTION
     Dosage: 1 DF, QM
     Route: 067
     Dates: start: 20060517, end: 20070223
  2. NUVARING [Suspect]
     Dosage: 1 DF, QM
     Route: 067
     Dates: start: 20080909, end: 20091025

REACTIONS (16)
  - HYPOTENSION [None]
  - HYPOTHYROIDISM [None]
  - DYSPNOEA [None]
  - ADJUSTMENT DISORDER [None]
  - DEPRESSION [None]
  - ANTIPHOSPHOLIPID SYNDROME [None]
  - DERMATITIS ATOPIC [None]
  - ABDOMINAL PAIN [None]
  - URINE ABNORMALITY [None]
  - CEREBROVASCULAR ACCIDENT [None]
  - NERVOUS SYSTEM DISORDER [None]
  - POSTPARTUM DEPRESSION [None]
  - VOMITING [None]
  - PYREXIA [None]
  - URTICARIA [None]
  - ANXIETY [None]
